FAERS Safety Report 22384846 (Version 1)
Quarter: 2023Q2

REPORT INFORMATION
  Report Type: Spontaneous
  Country: US (occurrence: US)
  Receive Date: 20230530
  Receipt Date: 20230530
  Transmission Date: 20230722
  Serious: Yes (Other)
  Sender: FDA-Public Use
  Company Number: US-009507513-2305USA008563

PATIENT
  Age: 42 Year
  Sex: Female

DRUGS (6)
  1. KEYTRUDA [Suspect]
     Active Substance: PEMBROLIZUMAB
     Indication: Metaplastic breast carcinoma
     Dosage: 200 MILLIGRAM, EVERY THREE WEEEKS (Q3W)
     Dates: start: 202109, end: 202203
  2. KEYTRUDA [Suspect]
     Active Substance: PEMBROLIZUMAB
     Dosage: 200 MILLIGRAM, Q3W
     Dates: start: 2022
  3. PACLITAXEL [Suspect]
     Active Substance: PACLITAXEL
     Indication: Metaplastic breast carcinoma
     Dosage: 80 MILLIGRAM/SQ. METER, QW
     Dates: start: 202109
  4. CARBOPLATIN [Suspect]
     Active Substance: CARBOPLATIN
     Indication: Metaplastic breast carcinoma
     Dosage: AREA UNDER THE CURVE (AUC) 1.5 MG/ML/MIN, QW
     Dates: start: 202109
  5. DOXORUBICIN [Suspect]
     Active Substance: DOXORUBICIN
     Indication: Metaplastic breast carcinoma
     Dosage: 60 MILLIGRAM/SQ. METER, Q3W
     Dates: end: 202203
  6. CYCLOPHOSPHAMIDE [Suspect]
     Active Substance: CYCLOPHOSPHAMIDE
     Indication: Metaplastic breast carcinoma
     Dosage: 600 MILLIGRAM/SQ. METER, Q3W
     Dates: end: 202203

REACTIONS (2)
  - Immune-mediated hypothyroidism [Unknown]
  - Off label use [Unknown]

NARRATIVE: CASE EVENT DATE: 20210901
